FAERS Safety Report 21957138 (Version 1)
Quarter: 2023Q1

REPORT INFORMATION
  Report Type: Spontaneous
  Country: US (occurrence: US)
  Receive Date: 20230206
  Receipt Date: 20230206
  Transmission Date: 20230418
  Serious: No
  Sender: FDA-Public Use
  Company Number: US-GLAXOSMITHKLINE-USCH2023AMR004708

PATIENT

DRUGS (1)
  1. IBUPROFEN [Suspect]
     Active Substance: IBUPROFEN
     Indication: Migraine
     Dosage: UNK

REACTIONS (1)
  - Drug ineffective [Unknown]
